FAERS Safety Report 23716994 (Version 1)
Quarter: 2024Q2

REPORT INFORMATION
  Report Type: Spontaneous
  Country: US (occurrence: US)
  Receive Date: 20240408
  Receipt Date: 20240408
  Transmission Date: 20240716
  Serious: Yes (Other)
  Sender: FDA-Public Use
  Company Number: US-SUN PHARMACEUTICAL INDUSTRIES LTD-2023R1-425505

PATIENT
  Age: 57 Year
  Sex: Female
  Weight: 65.7 kg

DRUGS (4)
  1. TEMOZOLOMIDE [Suspect]
     Active Substance: TEMOZOLOMIDE
     Indication: Neoplasm
     Dosage: UNK
     Route: 065
     Dates: start: 20231017, end: 20231021
  2. TEMOZOLOMIDE [Suspect]
     Active Substance: TEMOZOLOMIDE
     Dosage: UNK
     Route: 065
     Dates: start: 20230628
  3. TALAZOPARIB [Suspect]
     Active Substance: TALAZOPARIB
     Indication: Neoplasm
     Dosage: UNK
     Route: 065
     Dates: start: 20231011, end: 20231108
  4. TALAZOPARIB [Suspect]
     Active Substance: TALAZOPARIB
     Dosage: UNK
     Route: 065
     Dates: start: 20230628

REACTIONS (1)
  - Anaemia [Not Recovered/Not Resolved]

NARRATIVE: CASE EVENT DATE: 20231108
